FAERS Safety Report 8147823-3 (Version None)
Quarter: 2012Q1

REPORT INFORMATION
  Report Type: 
  Country: None (occurrence: None)
  Receive Date: 20120218
  Receipt Date: 20110318
  Transmission Date: 20120608
  Serious: No
  Sender: FDA-Public Use
  Company Number: US-ALLERGAN-1104031US

PATIENT
  Sex: Female

DRUGS (1)
  1. BOTOX COSMETIC [Suspect]
     Indication: SKIN WRINKLING
     Dosage: UNK
     Route: 023
     Dates: start: 20100201, end: 20100201

REACTIONS (3)
  - HYPERSENSITIVITY [None]
  - INJECTION SITE RASH [None]
  - INJECTION SITE PRURITUS [None]
